FAERS Safety Report 4567761-2 (Version None)
Quarter: 2005Q1

REPORT INFORMATION
  Report Type: 
  Country: None (occurrence: None)
  Receive Date: 20050125
  Receipt Date: 20050125
  Transmission Date: 20050727
  Serious: Yes (Life-Threatening, Hospitalization)
  Sender: FDA-Public Use
  Company Number: None

PATIENT
  Age: 70 Year
  Sex: Male
  Weight: 94.3482 kg

DRUGS (16)
  1. CRESTOR [Suspect]
     Indication: DYSLIPIDAEMIA
     Dosage: 20 MG DAILY PO
     Route: 048
     Dates: start: 20040401, end: 20050107
  2. GEMFIBROZIL [Suspect]
     Indication: DYSLIPIDAEMIA
     Dosage: 600 MG BID PO
     Route: 048
     Dates: start: 20040801, end: 20050107
  3. LISINOPRIL AND HYDROCHLOROTHIAZIDE [Concomitant]
  4. INDOMETHACIN [Concomitant]
  5. FUROSEMIDE [Concomitant]
  6. GLIPIZIDE [Concomitant]
  7. ASPIRIN [Concomitant]
  8. PEPCID [Concomitant]
  9. ESTER C [Concomitant]
  10. VIT B6 [Concomitant]
  11. MULTIVIT [Concomitant]
  12. CITROCAL [Concomitant]
  13. CALTRATE [Concomitant]
  14. VIT B12 [Concomitant]
  15. CA-MG [Concomitant]
  16. ST JOHN'S WORT [Concomitant]

REACTIONS (2)
  - RENAL FAILURE [None]
  - RHABDOMYOLYSIS [None]
